FAERS Safety Report 15700316 (Version 2)
Quarter: 2019Q1

REPORT INFORMATION
  Report Type: Spontaneous
  Country: US (occurrence: US)
  Receive Date: 20181207
  Receipt Date: 20190201
  Transmission Date: 20190417
  Serious: No
  Sender: FDA-Public Use
  Company Number: US-B.I. PHARMACEUTICALS,INC./RIDGEFIELD-2018-BI-058094

PATIENT
  Age: 82 Year
  Sex: Female

DRUGS (5)
  1. LEVOTHYROXINE. [Concomitant]
     Active Substance: LEVOTHYROXINE
     Indication: THYROID DISORDER
     Dosage: FORM STRENGTH: 25 MCG; FORMULATION: TABLET
     Route: 048
     Dates: start: 2015
  2. DILTIAZEM. [Concomitant]
     Active Substance: DILTIAZEM
     Indication: ARRHYTHMIA
     Dosage: FORM STRENGTH: 180 MG; FORMULATION: CAPSULE
     Route: 048
  3. FLOVENT HFA [Concomitant]
     Active Substance: FLUTICASONE PROPIONATE
     Indication: CHRONIC OBSTRUCTIVE PULMONARY DISEASE
     Dosage: PRN;  FORM STRENGTH: 220 MCG; FORMULATION: INHALATION SPRAY
     Route: 055
  4. COMBIVENT [Suspect]
     Active Substance: ALBUTEROL SULFATE\IPRATROPIUM BROMIDE
     Indication: CHRONIC OBSTRUCTIVE PULMONARY DISEASE
     Dosage: FORM STRENGTH: 20 MCG / 100 MCG; FORMULATION: INHALATION SPRAY?ACTION(S) TAKEN : DOSE NOT CHANGED
     Route: 055
  5. DIGOXIN. [Concomitant]
     Active Substance: DIGOXIN
     Indication: ARRHYTHMIA
     Dosage: FORM STRENGTH: 250 MCG; FORMULATION: TABLET
     Route: 048

REACTIONS (2)
  - Dyspnoea [Recovered/Resolved]
  - Product quality issue [Unknown]

NARRATIVE: CASE EVENT DATE: 20181129
